FAERS Safety Report 8331897-0 (Version None)
Quarter: 2012Q2

REPORT INFORMATION
  Report Type: 
  Country: None (occurrence: None)
  Receive Date: 20120502
  Receipt Date: 20120501
  Transmission Date: 20120825
  Serious: Yes (Death, Other)
  Sender: FDA-Public Use
  Company Number: US-GILEAD-2012-0054174

PATIENT
  Sex: Female

DRUGS (4)
  1. LETAIRIS [Suspect]
     Indication: PULMONARY HYPERTENSION
     Dosage: 10 MG, UNK
     Route: 048
     Dates: start: 20111123, end: 20120417
  2. LETAIRIS [Suspect]
     Indication: LUNG DISORDER
  3. LETAIRIS [Suspect]
     Indication: CARDIAC FAILURE CHRONIC
  4. LETAIRIS [Suspect]
     Indication: HEART DISEASE CONGENITAL

REACTIONS (6)
  - CIRCULATORY COLLAPSE [None]
  - CEREBROVASCULAR ACCIDENT [None]
  - MULTI-ORGAN FAILURE [None]
  - HYPOXIA [None]
  - CARDIAC ARREST [None]
  - MYOCARDIAL INFARCTION [None]
